FAERS Safety Report 9010083 (Version 1)
Quarter: 2013Q1

REPORT INFORMATION
  Report Type: Spontaneous
  Country: CA (occurrence: CA)
  Receive Date: 20130110
  Receipt Date: 20130110
  Transmission Date: 20140127
  Serious: Yes (Death, Other)
  Sender: FDA-Public Use
  Company Number: CA-JNJFOC-20130104137

PATIENT
  Age: 6 Decade
  Sex: Male

DRUGS (5)
  1. REOPRO [Suspect]
     Indication: PERCUTANEOUS CORONARY INTERVENTION
     Route: 022
  2. BIVALIRUDIN [Suspect]
     Indication: ANTICOAGULANT THERAPY
     Route: 065
  3. TICAGRELOR [Suspect]
     Indication: ANTICOAGULANT THERAPY
     Route: 065
  4. PLAVIX [Suspect]
     Indication: PRODUCT USED FOR UNKNOWN INDICATION
     Route: 065
  5. HEPARIN [Suspect]
     Indication: PRODUCT USED FOR UNKNOWN INDICATION
     Route: 065

REACTIONS (1)
  - Pulmonary haemorrhage [Fatal]
